FAERS Safety Report 7015486-6 (Version None)
Quarter: 2010Q3

REPORT INFORMATION
  Report Type: 
  Country: None (occurrence: None)
  Receive Date: 20100923
  Receipt Date: 20100909
  Transmission Date: 20110219
  Serious: Yes (Other)
  Sender: FDA-Public Use
  Company Number: TPG2010A00508

PATIENT
  Age: 51 Year
  Sex: Female

DRUGS (5)
  1. ACTOS [Suspect]
     Indication: TYPE 2 DIABETES MELLITUS
     Dosage: 30 MG PER ORAL
     Route: 048
     Dates: start: 20100301, end: 20100601
  2. LISINOPRIL [Suspect]
     Indication: PRODUCT USED FOR UNKNOWN INDICATION
     Dosage: PER ORAL
     Route: 048
  3. LEVOTHYROXINE SODIUM [Concomitant]
  4. SYMBICORT [Concomitant]
  5. GLIMEPIRIDE [Concomitant]

REACTIONS (3)
  - ALOPECIA [None]
  - PRURITUS GENERALISED [None]
  - WEIGHT INCREASED [None]
